FAERS Safety Report 5325068-X (Version None)
Quarter: 2007Q2

REPORT INFORMATION
  Report Type: 
  Country: None (occurrence: None)
  Receive Date: 20070510
  Receipt Date: 20070510
  Transmission Date: 20071010
  Serious: Yes (Other)
  Sender: FDA-Public Use
  Company Number: None

PATIENT
  Age: 61 Year
  Sex: Male
  Weight: 87.5442 kg

DRUGS (2)
  1. LAMICTAL [Suspect]
     Indication: DEPRESSION
     Dosage: 1 TAB ALTERNATE DAY PO
     Route: 048
     Dates: start: 20030415, end: 20030502
  2. LAMICTAL [Suspect]
     Indication: MOOD ALTERED
     Dosage: 1 TAB ALTERNATE DAY PO
     Route: 048
     Dates: start: 20030415, end: 20030502

REACTIONS (4)
  - PAIN [None]
  - RASH PUSTULAR [None]
  - SKIN EXFOLIATION [None]
  - SUNBURN [None]
